FAERS Safety Report 4751327-5 (Version None)
Quarter: 2005Q3

REPORT INFORMATION
  Report Type: 
  Country: None (occurrence: None)
  Receive Date: 20050823
  Receipt Date: 20050823
  Transmission Date: 20060218
  Serious: No
  Sender: FDA-Public Use
  Company Number: None

PATIENT
  Age: 52 Year
  Sex: Female
  Weight: 69.8539 kg

DRUGS (30)
  1. SEROQUEL [Suspect]
     Indication: BIPOLAR DISORDER
     Dosage: SEE IMAGE
     Dates: start: 20000222
  2. SEROQUEL [Suspect]
     Indication: PERSONALITY DISORDER
     Dosage: SEE IMAGE
     Dates: start: 20000222
  3. SEROQUEL [Suspect]
     Indication: BIPOLAR DISORDER
     Dosage: SEE IMAGE
     Dates: start: 20001201
  4. SEROQUEL [Suspect]
     Indication: PERSONALITY DISORDER
     Dosage: SEE IMAGE
     Dates: start: 20001201
  5. SEROQUEL [Suspect]
     Indication: BIPOLAR DISORDER
     Dosage: SEE IMAGE
     Dates: start: 20010101
  6. SEROQUEL [Suspect]
     Indication: PERSONALITY DISORDER
     Dosage: SEE IMAGE
     Dates: start: 20010101
  7. SEROQUEL [Suspect]
     Indication: BIPOLAR DISORDER
     Dosage: SEE IMAGE
     Dates: start: 20010601
  8. SEROQUEL [Suspect]
     Indication: PERSONALITY DISORDER
     Dosage: SEE IMAGE
     Dates: start: 20010601
  9. SEROQUEL [Suspect]
     Indication: BIPOLAR DISORDER
     Dosage: SEE IMAGE
     Dates: start: 20020901
  10. SEROQUEL [Suspect]
     Indication: PERSONALITY DISORDER
     Dosage: SEE IMAGE
     Dates: start: 20020901
  11. SEROQUEL [Suspect]
     Indication: BIPOLAR DISORDER
     Dosage: SEE IMAGE
     Dates: start: 20021201
  12. SEROQUEL [Suspect]
     Indication: PERSONALITY DISORDER
     Dosage: SEE IMAGE
     Dates: start: 20021201
  13. SEROQUEL [Suspect]
     Indication: BIPOLAR DISORDER
     Dosage: SEE IMAGE
     Dates: start: 20030701
  14. SEROQUEL [Suspect]
     Indication: PERSONALITY DISORDER
     Dosage: SEE IMAGE
     Dates: start: 20030701
  15. SEROQUEL [Suspect]
     Indication: BIPOLAR DISORDER
     Dosage: SEE IMAGE
     Dates: start: 20030728
  16. SEROQUEL [Suspect]
     Indication: PERSONALITY DISORDER
     Dosage: SEE IMAGE
     Dates: start: 20030728
  17. SEROQUEL [Suspect]
     Indication: BIPOLAR DISORDER
     Dosage: SEE IMAGE
     Dates: start: 20031001
  18. SEROQUEL [Suspect]
     Indication: PERSONALITY DISORDER
     Dosage: SEE IMAGE
     Dates: start: 20031001
  19. SEROQUEL [Suspect]
     Indication: BIPOLAR DISORDER
     Dosage: SEE IMAGE
     Dates: start: 20031001
  20. SEROQUEL [Suspect]
     Indication: PERSONALITY DISORDER
     Dosage: SEE IMAGE
     Dates: start: 20031001
  21. SEROQUEL [Suspect]
     Indication: BIPOLAR DISORDER
     Dosage: SEE IMAGE
     Dates: start: 20040101
  22. SEROQUEL [Suspect]
     Indication: PERSONALITY DISORDER
     Dosage: SEE IMAGE
     Dates: start: 20040101
  23. SEROQUEL [Suspect]
     Indication: BIPOLAR DISORDER
     Dosage: SEE IMAGE
     Dates: start: 20050307
  24. SEROQUEL [Suspect]
     Indication: PERSONALITY DISORDER
     Dosage: SEE IMAGE
     Dates: start: 20050307
  25. SEROQUEL [Suspect]
     Indication: BIPOLAR DISORDER
     Dosage: SEE IMAGE
     Dates: start: 20050427
  26. SEROQUEL [Suspect]
     Indication: PERSONALITY DISORDER
     Dosage: SEE IMAGE
     Dates: start: 20050427
  27. SEROQUEL [Suspect]
     Indication: BIPOLAR DISORDER
     Dosage: SEE IMAGE
     Dates: start: 20050427
  28. SEROQUEL [Suspect]
     Indication: PERSONALITY DISORDER
     Dosage: SEE IMAGE
     Dates: start: 20050427
  29. SEROQUEL [Suspect]
     Indication: BIPOLAR DISORDER
     Dosage: SEE IMAGE
     Dates: start: 20050601
  30. SEROQUEL [Suspect]
     Indication: PERSONALITY DISORDER
     Dosage: SEE IMAGE
     Dates: start: 20050601

REACTIONS (1)
  - CATARACT [None]
